FAERS Safety Report 11310886 (Version 1)
Quarter: 2015Q3

REPORT INFORMATION
  Report Type: Spontaneous
  Country: US (occurrence: US)
  Receive Date: 20150726
  Receipt Date: 20150726
  Transmission Date: 20151125
  Serious: No
  Sender: FDA-Public Use
  Company Number: US-TEVA-576474USA

PATIENT
  Age: 68 Year
  Sex: Male
  Weight: 79.45 kg

DRUGS (11)
  1. METOPROLOL [Concomitant]
     Active Substance: METOPROLOL
  2. POTASSIUM [Concomitant]
     Active Substance: POTASSIUM
  3. ACYCLOVIR. [Concomitant]
     Active Substance: ACYCLOVIR
  4. WARFARIN [Concomitant]
     Active Substance: WARFARIN
  5. SYNTHROID [Concomitant]
     Active Substance: LEVOTHYROXINE SODIUM
  6. DILTIAZEM [Concomitant]
     Active Substance: DILTIAZEM
  7. SYNRIBO [Suspect]
     Active Substance: OMACETAXINE MEPESUCCINATE
     Indication: CHRONIC MYELOID LEUKAEMIA
     Dosage: HOME ADMINISTRATION
     Route: 058
     Dates: start: 20150703, end: 20150706
  8. FUROSEMIDE. [Concomitant]
     Active Substance: FUROSEMIDE
  9. DIGOXIN. [Concomitant]
     Active Substance: DIGOXIN
  10. LOSARTAN. [Concomitant]
     Active Substance: LOSARTAN
  11. ALLOPURINOL. [Concomitant]
     Active Substance: ALLOPURINOL

REACTIONS (12)
  - Dysarthria [Unknown]
  - Pyrexia [Unknown]
  - Diarrhoea [Unknown]
  - Pyrexia [Unknown]
  - Hypopnoea [Unknown]
  - Vision blurred [Unknown]
  - Dyspnoea [Unknown]
  - Decreased appetite [Unknown]
  - Asthenia [Unknown]
  - Cough [Unknown]
  - Cold sweat [Unknown]
  - Hyperhidrosis [Unknown]

NARRATIVE: CASE EVENT DATE: 20150703
